FAERS Safety Report 13462263 (Version 1)
Quarter: 2017Q2

REPORT INFORMATION
  Report Type: Spontaneous
  Country: US (occurrence: US)
  Receive Date: 20170420
  Receipt Date: 20170420
  Transmission Date: 20170830
  Serious: No
  Sender: FDA-Public Use
  Company Number: US-BAUSCH-BL-2016-011375

PATIENT
  Age: 26 Year
  Sex: Female

DRUGS (1)
  1. ARESTIN [Suspect]
     Active Substance: MINOCYCLINE HYDROCHLORIDE
     Indication: INFLAMMATION
     Route: 048
     Dates: start: 20150608

REACTIONS (4)
  - Mouth swelling [Recovered/Resolved]
  - Syringe issue [Unknown]
  - Stomatitis [Recovered/Resolved]
  - Infection [Recovered/Resolved]
